FAERS Safety Report 21018225 (Version 3)
Quarter: 2022Q3

REPORT INFORMATION
  Report Type: Report from Study
  Country: AR (occurrence: AR)
  Receive Date: 20220628
  Receipt Date: 20220730
  Transmission Date: 20221026
  Serious: Yes (Hospitalization, Other)
  Sender: FDA-Public Use
  Company Number: AR-NOVARTISPH-NVSC2022AR144431

PATIENT
  Age: 63 Year
  Sex: Female

DRUGS (5)
  1. COSENTYX [Suspect]
     Active Substance: SECUKINUMAB
     Indication: Axial spondyloarthritis
     Dosage: 300 MG, QMO
     Route: 058
     Dates: start: 20180628, end: 20220526
  2. COSENTYX [Suspect]
     Active Substance: SECUKINUMAB
     Dosage: UNK
     Route: 065
  3. ESOMEPRAZOLE [Concomitant]
     Active Substance: ESOMEPRAZOLE
     Indication: Product used for unknown indication
     Dosage: UNK
     Route: 065
  4. CINITAPRIDE [Concomitant]
     Active Substance: CINITAPRIDE
     Indication: Product used for unknown indication
     Dosage: UNK
     Route: 065
  5. ZOLEDRONIC ACID [Concomitant]
     Active Substance: ZOLEDRONIC ACID
     Indication: Osteoporosis
     Dosage: 4 MG
     Route: 042
     Dates: start: 202112

REACTIONS (4)
  - Cervical spinal stenosis [Recovering/Resolving]
  - Myelopathy [Recovering/Resolving]
  - Emotional distress [Unknown]
  - Intervertebral disc protrusion [Recovering/Resolving]

NARRATIVE: CASE EVENT DATE: 20220201
